FAERS Safety Report 4636657-X (Version None)
Quarter: 2005Q2

REPORT INFORMATION
  Report Type: 
  Country: None (occurrence: None)
  Receive Date: 20050414
  Receipt Date: 20050406
  Transmission Date: 20051028
  Serious: Yes (Life-Threatening)
  Sender: FDA-Public Use
  Company Number: 2005AP02074

PATIENT
  Age: 68 Year
  Sex: Female

DRUGS (12)
  1. OMEPRAL [Suspect]
  2. EPL [Concomitant]
  3. URSO 250 [Concomitant]
  4. MYONAL [Concomitant]
  5. LENDORM [Concomitant]
  6. GLUCOSE [Concomitant]
  7. ADELAVIN [Concomitant]
  8. NICHIPHAGEN [Concomitant]
  9. TATHION [Concomitant]
  10. LACTULOSE [Concomitant]
  11. KANAMYCIN [Concomitant]
  12. MIYA BM [Concomitant]

REACTIONS (1)
  - HEPATITIS FULMINANT [None]
